FAERS Safety Report 9629402 (Version 1)
Quarter: 2013Q4

REPORT INFORMATION
  Report Type: Spontaneous
  Country: US (occurrence: US)
  Receive Date: 20131017
  Receipt Date: 20131017
  Transmission Date: 20140711
  Serious: No
  Sender: FDA-Public Use
  Company Number: US-ASTRAZENECA-2013SE55545

PATIENT
  Age: 59 Year
  Sex: Female
  Weight: 79.8 kg

DRUGS (6)
  1. PRILOSEC [Suspect]
     Indication: GASTROOESOPHAGEAL REFLUX DISEASE
     Dosage: DAILY
     Route: 048
     Dates: start: 2005, end: 2006
  2. NEXIUM [Suspect]
     Indication: GASTROOESOPHAGEAL REFLUX DISEASE
     Route: 048
     Dates: start: 2006
  3. CRESTOR [Suspect]
     Indication: BLOOD CHOLESTEROL ABNORMAL
     Route: 048
  4. KOMBIGLYZE [Concomitant]
     Indication: DIABETES MELLITUS
     Dosage: DAILY
     Route: 048
     Dates: start: 2012
  5. BENICAR [Concomitant]
     Indication: HYPERTENSION
     Dosage: 40/25 DAILY
     Route: 048
     Dates: start: 2011
  6. LEVOTHYROXINE [Concomitant]
     Indication: HYPOTHYROIDISM
     Route: 048
     Dates: start: 2008

REACTIONS (3)
  - Diabetes mellitus [Unknown]
  - Hyperthyroidism [Unknown]
  - Drug ineffective [Unknown]
